FAERS Safety Report 4844146-2 (Version None)
Quarter: 2005Q4

REPORT INFORMATION
  Report Type: 
  Country: None (occurrence: None)
  Receive Date: 20051202
  Receipt Date: 20050831
  Transmission Date: 20060501
  Serious: Yes (Hospitalization, Other)
  Sender: FDA-Public Use
  Company Number: DEWYE942731AUG05

PATIENT
  Sex: Female

DRUGS (1)
  1. ENBREL [Suspect]
     Indication: RHEUMATOID ARTHRITIS
     Dosage: UNKNOWN
     Route: 058
     Dates: start: 20040401

REACTIONS (4)
  - ANTEROGRADE AMNESIA [None]
  - CONFUSIONAL STATE [None]
  - DISORIENTATION [None]
  - RETROGRADE AMNESIA [None]
